FAERS Safety Report 5157403-X (Version None)
Quarter: 2006Q4

REPORT INFORMATION
  Report Type: 
  Country: None (occurrence: None)
  Receive Date: 20061116
  Receipt Date: 20061102
  Transmission Date: 20070319
  Serious: Yes (Death)
  Sender: FDA-Public Use
  Company Number: DSA_81747_2006

PATIENT
  Age: 52 Year
  Sex: Female

DRUGS (1)
  1. XYREM [Suspect]
     Indication: DRUG USE FOR UNKNOWN INDICATION
     Dosage: DF PO
     Route: 048

REACTIONS (1)
  - OVERDOSE [None]
